FAERS Safety Report 18205267 (Version 2)
Quarter: 2020Q3

REPORT INFORMATION
  Report Type: Spontaneous
  Country: JP (occurrence: JP)
  Receive Date: 20200827
  Receipt Date: 20200916
  Transmission Date: 20201103
  Serious: Yes (Hospitalization)
  Sender: FDA-Public Use
  Company Number: JP-JNJFOC-20200817752

PATIENT
  Age: 6 Decade
  Sex: Female

DRUGS (4)
  1. NEOPERIDOL [Suspect]
     Active Substance: HALOPERIDOL
     Indication: PSYCHIATRIC SYMPTOM
     Dosage: DOSE UNKNOWN
     Route: 030
     Dates: start: 20200512, end: 20200512
  2. NEOPERIDOL [Suspect]
     Active Substance: HALOPERIDOL
     Dosage: DOSE UNKNOWN
     Route: 030
     Dates: start: 20200608, end: 20200608
  3. NEOPERIDOL [Suspect]
     Active Substance: HALOPERIDOL
     Route: 030
     Dates: start: 20200808
  4. NEOPERIDOL [Suspect]
     Active Substance: HALOPERIDOL
     Dosage: DOSE UNKNOWN
     Route: 030
     Dates: start: 20200722, end: 20200722

REACTIONS (1)
  - Aggression [Recovered/Resolved]

NARRATIVE: CASE EVENT DATE: 2020
